FAERS Safety Report 24618636 (Version 1)
Quarter: 2024Q4

REPORT INFORMATION
  Report Type: Spontaneous
  Country: US (occurrence: None)
  Receive Date: 20241113
  Receipt Date: 20241113
  Transmission Date: 20250115
  Serious: Yes (Hospitalization)
  Sender: Public
  Company Number: None

PATIENT
  Sex: Male

DRUGS (4)
  1. WINREVAIR [Suspect]
     Active Substance: SOTATERCEPT-CSRK
     Indication: Pulmonary arterial hypertension
     Dosage: OTHER FREQUENCY : EVERY 3 WEEKS ;?
     Route: 058
     Dates: start: 202406
  2. OPSUMIT [Suspect]
     Active Substance: MACITENTAN
  3. REMODULIN [Suspect]
     Active Substance: TREPROSTINIL
  4. UPTRAVI [Suspect]
     Active Substance: SELEXIPAG

REACTIONS (5)
  - Diarrhoea [None]
  - Pain in jaw [None]
  - Headache [None]
  - Nausea [None]
  - Flushing [None]
